FAERS Safety Report 7936918-2 (Version None)
Quarter: 2011Q4

REPORT INFORMATION
  Report Type: 
  Country: None (occurrence: None)
  Receive Date: 20111123
  Receipt Date: 20111118
  Transmission Date: 20120403
  Serious: No
  Sender: FDA-Public Use
  Company Number: US-PFIZER INC-2011283317

PATIENT
  Sex: Male
  Weight: 90.703 kg

DRUGS (9)
  1. ZOLOFT [Suspect]
     Indication: BIPOLAR DISORDER
  2. LORTAB [Concomitant]
     Indication: BLOOD CHOLESTEROL INCREASED
     Dosage: ^600MG^, 2X/DAY
  3. ZOLOFT [Suspect]
     Indication: ANXIETY
     Dosage: 200 MG, DAILY
     Dates: start: 20030101
  4. ZOLOFT [Suspect]
     Indication: POST-TRAUMATIC STRESS DISORDER
  5. NEURONTIN [Suspect]
     Dosage: UNK
  6. LOPRESSOR [Concomitant]
     Indication: CARDIAC DISORDER
     Dosage: 25 MG, 2X/DAY
  7. ACETYLSALICYLIC ACID [Concomitant]
     Indication: ANTICOAGULANT THERAPY
     Dosage: 81 MG, DAILY
  8. KLONOPIN [Concomitant]
     Indication: SLEEP DISORDER
     Dosage: 2.5 MG, DAILY
  9. KLONOPIN [Concomitant]
     Indication: ANXIETY

REACTIONS (4)
  - VISION BLURRED [None]
  - TREMOR [None]
  - HEADACHE [None]
  - MUSCLE SPASMS [None]
